FAERS Safety Report 5140851-1 (Version None)
Quarter: 2006Q4

REPORT INFORMATION
  Report Type: 
  Country: None (occurrence: None)
  Receive Date: 20061025
  Receipt Date: 20061011
  Transmission Date: 20070319
  Serious: Yes (Hospitalization, Other)
  Sender: FDA-Public Use
  Company Number: 2006109107

PATIENT
  Age: 43 Year
  Sex: Male
  Weight: 79.3795 kg

DRUGS (4)
  1. BEXTRA [Suspect]
     Indication: OSTEOARTHRITIS
     Dosage: 10 MG (10 MG, 1 IN 1 D), ORAL
     Route: 048
     Dates: start: 20030828
  2. BEXTRA [Suspect]
     Indication: PAIN
     Dosage: 10 MG (10 MG, 1 IN 1 D), ORAL
     Route: 048
     Dates: start: 20030828
  3. BEXTRA [Suspect]
     Indication: PLANTAR FASCIITIS
     Dosage: 10 MG (10 MG, 1 IN 1 D), ORAL
     Route: 048
     Dates: start: 20030828
  4. BEXTRA [Suspect]
     Indication: TENDONITIS
     Dosage: 10 MG (10 MG, 1 IN 1 D), ORAL
     Route: 048
     Dates: start: 20030828

REACTIONS (6)
  - CAROTID ARTERY OCCLUSION [None]
  - DEPRESSION [None]
  - INJURY [None]
  - ISCHAEMIC STROKE [None]
  - MENTAL DISORDER [None]
  - TRANSIENT ISCHAEMIC ATTACK [None]
